FAERS Safety Report 9472723 (Version 1)
Quarter: 2013Q3

REPORT INFORMATION
  Report Type: Spontaneous
  Country: US (occurrence: US)
  Receive Date: 20130823
  Receipt Date: 20130823
  Transmission Date: 20140515
  Serious: No
  Sender: FDA-Public Use
  Company Number: US-BAYER-2013-101698

PATIENT
  Age: 46 Year
  Sex: Female
  Weight: 63.49 kg

DRUGS (6)
  1. BETASERON [Suspect]
     Dosage: 0.25 MG, QOD
     Route: 058
     Dates: start: 2001
  2. SYNTHROID [Concomitant]
     Dosage: 88 ?G, UNK
  3. METOPROLOL [Concomitant]
     Dosage: 25 MG, UNK
  4. OXYCODONE/APAP [Concomitant]
  5. TRIAMTERENE [Concomitant]
  6. HYDROCHLOROTHIAZIDE [Concomitant]
     Dosage: 37.5-25

REACTIONS (1)
  - Injection site bruising [Unknown]
